FAERS Safety Report 6511849-3 (Version None)
Quarter: 2009Q4

REPORT INFORMATION
  Report Type: 
  Country: None (occurrence: None)
  Receive Date: 20091222
  Receipt Date: 20091221
  Transmission Date: 20100525
  Serious: Yes (Hospitalization, Other)
  Sender: FDA-Public Use
  Company Number: GB-WYE-G05125609

PATIENT
  Sex: Male

DRUGS (2)
  1. RAPAMUNE [Suspect]
     Indication: TRANSPLANT REJECTION
     Dosage: UNKNOWN
     Dates: start: 20090701, end: 20090101
  2. RAPAMUNE [Suspect]
     Dosage: UNKNOWN
     Dates: start: 20090101

REACTIONS (1)
  - PROCTOCOLITIS [None]
